FAERS Safety Report 7781817-2 (Version None)
Quarter: 2011Q3

REPORT INFORMATION
  Report Type: 
  Country: None (occurrence: None)
  Receive Date: 20110927
  Receipt Date: 20110921
  Transmission Date: 20111222
  Serious: Yes (Other)
  Sender: FDA-Public Use
  Company Number: AT-GLAXOSMITHKLINE-B0750296A

PATIENT
  Sex: Female

DRUGS (2)
  1. PAROXETINE HCL [Concomitant]
  2. WELLBUTRIN [Suspect]
     Indication: PRODUCT USED FOR UNKNOWN INDICATION

REACTIONS (3)
  - INFECTION [None]
  - SKIN LESION [None]
  - STEVENS-JOHNSON SYNDROME [None]
